FAERS Safety Report 5140419-7 (Version None)
Quarter: 2006Q4

REPORT INFORMATION
  Report Type: 
  Country: None (occurrence: None)
  Receive Date: 20061031
  Receipt Date: 20061024
  Transmission Date: 20070319
  Serious: Yes (Hospitalization)
  Sender: FDA-Public Use
  Company Number: US-BRISTOL-MYERS SQUIBB COMPANY-13553797

PATIENT
  Age: 52 Year
  Sex: Female
  Weight: 118 kg

DRUGS (10)
  1. ERBITUX [Suspect]
     Indication: BREAST CANCER
     Route: 042
     Dates: start: 20060509, end: 20060509
  2. CARBOPLATIN [Suspect]
     Indication: BREAST CANCER
     Route: 042
     Dates: start: 20060509, end: 20060509
  3. CAMPTOSAR [Suspect]
     Indication: BREAST CANCER
     Route: 042
     Dates: start: 20060509, end: 20060509
  4. OXYCONTIN [Concomitant]
     Indication: PAIN
     Route: 048
     Dates: start: 20060213
  5. FENTANYL [Concomitant]
     Indication: PAIN
     Route: 048
     Dates: start: 20060410
  6. IBUPROFEN [Concomitant]
     Indication: PAIN
     Route: 048
     Dates: start: 20051122
  7. K-DUR 10 [Concomitant]
     Indication: HYPOKALAEMIA
     Route: 048
     Dates: start: 20051222
  8. MAGNESIUM [Concomitant]
     Indication: MAGNESIUM DEFICIENCY
  9. OXYFAST [Concomitant]
     Indication: PAIN
     Dates: start: 20060227, end: 20060525
  10. IMODIUM [Concomitant]
     Indication: DIARRHOEA
     Route: 048
     Dates: start: 20060523, end: 20060525

REACTIONS (1)
  - SEPSIS [None]
